FAERS Safety Report 12726410 (Version 2)
Quarter: 2016Q4

REPORT INFORMATION
  Report Type: Report from Study
  Country: IT (occurrence: IT)
  Receive Date: 20160908
  Receipt Date: 20161010
  Transmission Date: 20170207
  Serious: Yes (Other)
  Sender: FDA-Public Use
  Company Number: IT-GILEAD-2016-0231328

PATIENT
  Age: 55 Year
  Sex: Male
  Weight: 52 kg

DRUGS (14)
  1. EMTRICITABINE/TENOFOVIR DISOPROXIL FUMARATE [Suspect]
     Active Substance: EMTRICITABINE\TENOFOVIR DISOPROXIL FUMARATE
     Indication: ACQUIRED IMMUNODEFICIENCY SYNDROME
     Dosage: 1 DF, QD
     Route: 048
     Dates: start: 20121022, end: 20160920
  2. PARACETAMOL [Concomitant]
     Active Substance: ACETAMINOPHEN
  3. CHOLECALCIFEROL [Concomitant]
     Active Substance: CHOLECALCIFEROL
  4. FOLIC ACID. [Concomitant]
     Active Substance: FOLIC ACID
  5. ISENTRESS [Concomitant]
     Active Substance: RALTEGRAVIR POTASSIUM
     Indication: HIV INFECTION
     Dosage: 400 MG, UNK
     Route: 048
     Dates: start: 20121205, end: 20160920
  6. TESTOSTERONE. [Concomitant]
     Active Substance: TESTOSTERONE
     Indication: SECONDARY HYPOGONADISM
     Dosage: UNK
     Dates: start: 2014
  7. SODIUM RISEDRONATE [Concomitant]
     Active Substance: RISEDRONATE SODIUM
  8. RAMIPRIL. [Concomitant]
     Active Substance: RAMIPRIL
     Indication: HYPERTENSION
     Dosage: 1.25 MG, UNK
     Dates: start: 2015
  9. OXYCODON [Concomitant]
     Active Substance: OXYCODONE
     Indication: BACK PAIN
     Dosage: 160 MG, UNK
     Dates: start: 2014
  10. OXYCODONE HYDROCHLORIDE. [Concomitant]
     Active Substance: OXYCODONE HYDROCHLORIDE
  11. DELORAZEPAM [Concomitant]
     Active Substance: DELORAZEPAM
  12. OXYCODONE W/PARACETAMOL [Concomitant]
     Active Substance: ACETAMINOPHEN\OXYCODONE HYDROCHLORIDE
     Indication: BACK PAIN
     Dosage: UNK
     Dates: start: 2014
  13. INTELENCE [Concomitant]
     Active Substance: ETRAVIRINE
     Dosage: 200 MG, UNK
     Dates: start: 20121205, end: 20160920
  14. RABEPRAZOLE [Concomitant]
     Active Substance: RABEPRAZOLE
     Indication: GASTRIC DISORDER
     Dosage: 20 MG, UNK
     Dates: start: 2014

REACTIONS (4)
  - Chronic kidney disease [Not Recovered/Not Resolved]
  - Spinal compression fracture [Not Recovered/Not Resolved]
  - Focal segmental glomerulosclerosis [Not Recovered/Not Resolved]
  - Osteoporosis [Not Recovered/Not Resolved]

NARRATIVE: CASE EVENT DATE: 20160901
